FAERS Safety Report 7114467-1 (Version None)
Quarter: 2010Q4

REPORT INFORMATION
  Report Type: 
  Country: None (occurrence: None)
  Receive Date: 20101119
  Receipt Date: 20101111
  Transmission Date: 20110411
  Serious: Yes (Life-Threatening, Hospitalization, Disabling)
  Sender: FDA-Public Use
  Company Number: JP-ABBOTT-10P-087-0681501-00

PATIENT
  Sex: Male
  Weight: 74 kg

DRUGS (10)
  1. SEVOFLURANE [Suspect]
     Indication: GENERAL ANAESTHESIA
     Dosage: 1-5%
     Route: 055
     Dates: start: 20100527, end: 20100527
  2. LEVOBUPIVACAINE HYDROCHLORIDE [Suspect]
     Indication: EPIDURAL ANAESTHESIA
     Route: 008
     Dates: start: 20100527, end: 20100527
  3. PROPOFOL [Suspect]
     Indication: INDUCTION OF ANAESTHESIA
     Route: 042
     Dates: start: 20100527, end: 20100527
  4. FENTANYL [Suspect]
     Indication: GENERAL ANAESTHESIA
     Route: 042
     Dates: start: 20100527, end: 20100527
  5. PHENYLEPHRINE HYDROCHLORIDE [Concomitant]
     Indication: VASOCONSTRICTION
     Dosage: DAILY
     Route: 042
     Dates: start: 20100527, end: 20100527
  6. ETILEFRINE HYDROCHLORIDE [Concomitant]
     Indication: VASOCONSTRICTION
     Dosage: DAILY
     Route: 042
     Dates: start: 20100527, end: 20100527
  7. MIDAZOLAM [Concomitant]
     Indication: SEDATION
     Dosage: DAILY
     Route: 042
     Dates: start: 20100527, end: 20100527
  8. ATROPINE SULFATE [Concomitant]
     Indication: BRADYCARDIA
     Dosage: DAILY
     Route: 042
     Dates: start: 20100527, end: 20100527
  9. NICORANDIL [Concomitant]
     Indication: TACHYCARDIA
     Route: 041
     Dates: start: 20100527, end: 20100527
  10. ROCURONIUM BROMIDE [Concomitant]
     Indication: HYPOTONIA
     Dosage: DAILY
     Route: 042
     Dates: start: 20100527, end: 20100527

REACTIONS (4)
  - BRADYCARDIA [None]
  - CARDIAC ARREST [None]
  - PRINZMETAL ANGINA [None]
  - PROCEDURAL COMPLICATION [None]
